FAERS Safety Report 8172425-2 (Version None)
Quarter: 2012Q1

REPORT INFORMATION
  Report Type: 
  Country: None (occurrence: None)
  Receive Date: 20120229
  Receipt Date: 20120215
  Transmission Date: 20120608
  Serious: Yes (Other)
  Sender: FDA-Public Use
  Company Number: RU-RANBAXY-2012R3-52851

PATIENT

DRUGS (3)
  1. DIAZOLIN [Suspect]
     Indication: ANTIALLERGIC THERAPY
     Dosage: 0.2 G, DAILY
     Route: 048
     Dates: start: 20120118, end: 20120120
  2. KETOROLAC TROMETHAMINE [Suspect]
     Indication: ANALGESIC THERAPY
     Dosage: 20 MG, DAILY
     Route: 048
     Dates: start: 20120118, end: 20120120
  3. CIPROFLOXACIN + TINIDAZOLE [Suspect]
     Indication: PERIOSTITIS
     Dosage: 500/600MG, TID
     Route: 048
     Dates: start: 20120118, end: 20120120

REACTIONS (2)
  - DRUG INEFFECTIVE [None]
  - CONDITION AGGRAVATED [None]
